FAERS Safety Report 10109418 (Version 2)
Quarter: 2015Q1

REPORT INFORMATION
  Report Type: Spontaneous
  Country: US (occurrence: None)
  Receive Date: 20140421
  Receipt Date: 20150120
  Transmission Date: 20150720
  Serious: No
  Sender: FDA-Public Use
  Company Number: AEGR000287

PATIENT
  Age: 60 Year
  Sex: Female
  Weight: 74.4 kg

DRUGS (6)
  1. LOVAZA (OMEGA-3-ACID ETHYL ESTER) [Concomitant]
  2. TRAZODONE HCL (TRAZODONE HYDROCHLORIDE) [Concomitant]
  3. CELEXA [Concomitant]
     Active Substance: CITALOPRAM HYDROBROMIDE
  4. FOLIC ACID (FOLIC ACID) [Concomitant]
     Active Substance: FOLIC ACID
  5. JUXTAPID [Suspect]
     Active Substance: LOMITAPIDE MESYLATE
     Indication: PRODUCT USED FOR UNKNOWN INDICATION
     Route: 048
     Dates: start: 20130510, end: 201402
  6. DIPENTUM (OLSALAZINE SODIUM) [Concomitant]

REACTIONS (3)
  - Nausea [None]
  - Diarrhoea [None]
  - Product used for unknown indication [None]

NARRATIVE: CASE EVENT DATE: 20130510
